FAERS Safety Report 5270551-9 (Version None)
Quarter: 2007Q1

REPORT INFORMATION
  Report Type: 
  Country: None (occurrence: None)
  Receive Date: 20070315
  Receipt Date: 20070310
  Transmission Date: 20070707
  Serious: Yes (Other)
  Sender: FDA-Public Use
  Company Number: 222872

PATIENT
  Age: 60 Year
  Sex: Female

DRUGS (1)
  1. HERCEPTIN [Suspect]
     Indication: BREAST CANCER
     Dosage: Q3W

REACTIONS (3)
  - CARDIAC DISORDER [None]
  - CHEST PAIN [None]
  - MUSCLE SPASMS [None]
